FAERS Safety Report 5569909-X (Version None)
Quarter: 2007Q4

REPORT INFORMATION
  Report Type: 
  Country: None (occurrence: None)
  Receive Date: 20071218
  Receipt Date: 20071212
  Transmission Date: 20080405
  Serious: Yes (Hospitalization)
  Sender: FDA-Public Use
  Company Number: SPV1-2007-04560

PATIENT
  Age: 67 Year
  Sex: Male
  Weight: 90 kg

DRUGS (10)
  1. FOSRENOL [Suspect]
     Indication: HYPERPHOSPHATAEMIA
     Dosage: 2250 MG, ORAL
     Route: 048
     Dates: start: 20070425
  2. DEPAKENE [Concomitant]
  3. MEP (OMEPRAZOLE) [Concomitant]
  4. DREISAVIT N (AMMONIUM PERSULFATE, ASCORBIC ACID, BIOTIN, CALCIUM PANTO [Concomitant]
  5. METOPROLOL TARTRATE [Concomitant]
  6. MOLSIDOMIN (MOLSIDOMINE) [Concomitant]
  7. FUROSEMIDE [Concomitant]
  8. ASPIRIN [Concomitant]
  9. ARANESP [Concomitant]
  10. FERRLECIT (FERROUS SUCCINATE) [Concomitant]

REACTIONS (3)
  - CONDITION AGGRAVATED [None]
  - COORDINATION ABNORMAL [None]
  - SPINOCEREBELLAR ATAXIA [None]
